FAERS Safety Report 22196053 (Version 1)
Quarter: 2023Q2

REPORT INFORMATION
  Report Type: Spontaneous
  Country: CN (occurrence: CN)
  Receive Date: 20230411
  Receipt Date: 20230411
  Transmission Date: 20230722
  Serious: Yes (Death, Other)
  Sender: FDA-Public Use
  Company Number: CN-STRIDES ARCOLAB LIMITED-2023SP004893

PATIENT
  Age: 19 Year
  Sex: Female

DRUGS (3)
  1. ETOPOSIDE [Suspect]
     Active Substance: ETOPOSIDE
     Indication: Ovarian germ cell endodermal sinus tumour
     Dosage: 250 MILLIGRAM/SQ. METER/DAY, CYCLICAL, BEP REGIMEN;ON DAYS 1-5,CYCLES REPEATED EVERY 3 WEEKS FOR 6 C
     Route: 065
  2. CISPLATIN [Suspect]
     Active Substance: CISPLATIN
     Indication: Ovarian germ cell endodermal sinus tumour
     Dosage: 20 MILLIGRAM/SQ. METER/DAY, CYCLICAL, BEP REGIMEN;ON DAYS 1-5,CYCLES REPEATED EVERY 3 WEEKS FOR 6 CY
     Route: 065
  3. BLEOMYCIN [Suspect]
     Active Substance: BLEOMYCIN SULFATE
     Indication: Ovarian germ cell endodermal sinus tumour
     Dosage: 15 MILLIGRAM/DAY, CYCLICAL, BEP REGIMEN; ON DAYS 1-3,CYCLES REPEATED EVERY 3 WEEKS FOR 6 CYCLES
     Route: 065

REACTIONS (3)
  - Death [Fatal]
  - Drug ineffective [Unknown]
  - Off label use [Unknown]
